FAERS Safety Report 9642084 (Version 1)
Quarter: 2013Q4

REPORT INFORMATION
  Report Type: Report from Study
  Country: US (occurrence: US)
  Receive Date: 20131023
  Receipt Date: 20131023
  Transmission Date: 20140711
  Serious: Yes (Other)
  Sender: FDA-Public Use
  Company Number: US-ROCHE-1291585

PATIENT
  Sex: Male

DRUGS (5)
  1. HERCEPTIN [Suspect]
     Indication: SALIVARY GLAND CANCER
     Dosage: IVPB
     Route: 042
  2. LASIX [Concomitant]
     Route: 065
  3. COUMADIN [Concomitant]
     Route: 065
  4. LEVOTHYROXINE [Concomitant]
     Route: 065
  5. LORAZEPAM [Concomitant]
     Route: 065

REACTIONS (3)
  - Anaemia [Recovering/Resolving]
  - Atrial fibrillation [Unknown]
  - Urethral stenosis [Unknown]
